FAERS Safety Report 11415220 (Version 1)
Quarter: 2015Q3

REPORT INFORMATION
  Report Type: Spontaneous
  Country: US (occurrence: US)
  Receive Date: 20150825
  Receipt Date: 20150825
  Transmission Date: 20151125
  Serious: No
  Sender: FDA-Public Use
  Company Number: US-TEVA-543711USA

PATIENT
  Sex: Female

DRUGS (1)
  1. ENALAPRIL [Suspect]
     Active Substance: ENALAPRIL

REACTIONS (5)
  - Product substitution issue [Unknown]
  - Swelling face [Unknown]
  - Ocular hyperaemia [Unknown]
  - Erythema [Unknown]
  - Eye swelling [Unknown]
